FAERS Safety Report 17465028 (Version 2)
Quarter: 2020Q1

REPORT INFORMATION
  Report Type: Spontaneous
  Country: JP (occurrence: JP)
  Receive Date: 20200226
  Receipt Date: 20200316
  Transmission Date: 20200409
  Serious: Yes (Death, Hospitalization)
  Sender: FDA-Public Use
  Company Number: JP-DSJP-DSJ-2020-106178

PATIENT

DRUGS (9)
  1. LIXIANA TABLETS [Suspect]
     Active Substance: EDOXABAN TOSYLATE
     Indication: ATRIAL FIBRILLATION
     Dosage: 30MG/DAY
     Route: 065
  2. LASIX [Concomitant]
     Active Substance: FUROSEMIDE
     Dosage: 10MG/DAY
     Route: 065
  3. MAINTATE [Concomitant]
     Active Substance: BISOPROLOL FUMARATE
     Dosage: 0.625MG/DAY
     Route: 065
  4. THYRADIN [Concomitant]
     Active Substance: LEVOTHYROXINE
     Dosage: 25UG/DAY
     Route: 065
  5. LIVACT                             /00847901/ [Concomitant]
     Active Substance: ISOLEUCINE\LEUCINE\VALINE
     Dosage: 13.5G/DAY
     Route: 065
  6. TAKEPRON [Concomitant]
     Active Substance: LANSOPRAZOLE
     Dosage: UNK
     Route: 065
  7. SHAKUYAKUKANZOTO [Concomitant]
     Active Substance: HERBALS
     Dosage: 7.5G/DAY
     Route: 065
  8. URSO [Concomitant]
     Active Substance: URSODIOL
     Dosage: 600MG/DAY
     Route: 065
  9. SAMSCA [Concomitant]
     Active Substance: TOLVAPTAN
     Dosage: 15MG/DAY
     Route: 048

REACTIONS (1)
  - Cardiac failure [Fatal]
